FAERS Safety Report 4594188-X (Version None)
Quarter: 2005Q1

REPORT INFORMATION
  Report Type: 
  Country: None (occurrence: None)
  Receive Date: 20050301
  Receipt Date: 20050225
  Transmission Date: 20050727
  Serious: Yes (Hospitalization)
  Sender: FDA-Public Use
  Company Number: DE-GLAXOSMITHKLINE-D0045998A

PATIENT
  Age: 15 Year
  Sex: Male

DRUGS (2)
  1. LAMICTAL [Suspect]
     Dosage: 25MG PER DAY
     Route: 048
     Dates: start: 20050201
  2. MULTIPLE MEDICATIONS [Concomitant]
     Route: 065

REACTIONS (3)
  - CONJUNCTIVITIS [None]
  - ENANTHEMA [None]
  - RASH MACULO-PAPULAR [None]
